FAERS Safety Report 8830584 (Version 1)
Quarter: 2012Q4

REPORT INFORMATION
  Report Type: Spontaneous
  Country: GB (occurrence: None)
  Receive Date: 20121004
  Receipt Date: 20121004
  Transmission Date: 20130627
  Serious: Yes (Other)
  Sender: FDA-Public Use
  Company Number: AUR-APL-2012-04123

PATIENT
  Age: 50 Year
  Sex: Female
  Weight: 95.25 kg

DRUGS (2)
  1. SERTRALINE [Suspect]
     Indication: ANXIETY
     Route: 048
     Dates: start: 20120807, end: 20120813
  2. METFORMIN (METFORMIN) [Concomitant]

REACTIONS (6)
  - Anxiety [None]
  - Visual impairment [None]
  - Dizziness [None]
  - Disorientation [None]
  - Fear [None]
  - Drug prescribing error [None]
